FAERS Safety Report 6727193-5 (Version None)
Quarter: 2010Q2

REPORT INFORMATION
  Report Type: 
  Country: None (occurrence: None)
  Receive Date: 20100512
  Receipt Date: 20100119
  Transmission Date: 20101027
  Serious: No
  Sender: FDA-Public Use
  Company Number: 1000011366

PATIENT
  Age: 62 Year
  Sex: Female

DRUGS (16)
  1. SAVELLA [Suspect]
     Indication: FIBROMYALGIA
     Dosage: 12.5 MG (12.5 MG,1 IN 1 D),ORAL;25 MG (12.5 MG,2 IN 1 D),ORAL;50 MG (25 MG,2 IN 1 D),ORAL
     Route: 048
     Dates: start: 20100104, end: 20100104
  2. SAVELLA [Suspect]
     Indication: FIBROMYALGIA
     Dosage: 12.5 MG (12.5 MG,1 IN 1 D),ORAL;25 MG (12.5 MG,2 IN 1 D),ORAL;50 MG (25 MG,2 IN 1 D),ORAL
     Route: 048
     Dates: start: 20100105, end: 20100106
  3. SAVELLA [Suspect]
     Indication: FIBROMYALGIA
     Dosage: 12.5 MG (12.5 MG,1 IN 1 D),ORAL;25 MG (12.5 MG,2 IN 1 D),ORAL;50 MG (25 MG,2 IN 1 D),ORAL
     Route: 048
     Dates: start: 20100107, end: 20100110
  4. SAVELLA [Suspect]
     Indication: FIBROMYALGIA
     Dosage: 100 MG (50 MG,2 IN 1 D0,ORAL
     Route: 048
     Dates: start: 20100111, end: 20100116
  5. NEURONTIN [Concomitant]
  6. CYMBALTA [Concomitant]
  7. WELCHOL [Concomitant]
  8. VALPROIC ACID [Concomitant]
  9. ALLEGRA [Concomitant]
  10. KLONOPIN [Concomitant]
  11. LOFIBRA [Concomitant]
  12. TOPROL-XL [Concomitant]
  13. DITROPAN [Concomitant]
  14. DESYREL [Concomitant]
  15. PEPCID [Concomitant]
  16. PERCOCET [Concomitant]

REACTIONS (4)
  - ANXIETY [None]
  - CONFUSIONAL STATE [None]
  - DELUSION [None]
  - DISORIENTATION [None]
